FAERS Safety Report 15457898 (Version 1)
Quarter: 2018Q4

REPORT INFORMATION
  Report Type: Spontaneous
  Country: US (occurrence: US)
  Receive Date: 20181003
  Receipt Date: 20181003
  Transmission Date: 20190204
  Serious: No
  Sender: FDA-Public Use
  Company Number: US-009507513-1809USA008497

PATIENT
  Sex: Female

DRUGS (2)
  1. FOLLISTIM [Suspect]
     Active Substance: FOLLITROPIN
     Indication: INFERTILITY FEMALE
     Dosage: STRENGTH : 600 IU/0.72 ML, DOSE : 70-450 UNITS, QPM
     Route: 058
     Dates: start: 20180828
  2. PREGNYL [Suspect]
     Active Substance: CHORIOGONADOTROPIN ALFA
     Indication: INFERTILITY FEMALE
     Dosage: 10000 ^MDV^
     Route: 058
     Dates: start: 20180828

REACTIONS (1)
  - Thirst [Unknown]

NARRATIVE: CASE EVENT DATE: 2018
